FAERS Safety Report 7773034-7 (Version None)
Quarter: 2011Q3

REPORT INFORMATION
  Report Type: 
  Country: None (occurrence: None)
  Receive Date: 20110922
  Receipt Date: 20110504
  Transmission Date: 20111222
  Serious: No
  Sender: FDA-Public Use
  Company Number: US-ASTRAZENECA-2011SE20073

PATIENT
  Age: 48 Year
  Sex: Female

DRUGS (3)
  1. SEROQUEL [Suspect]
     Route: 048
     Dates: start: 20050101, end: 20110101
  2. SEROQUEL [Suspect]
     Route: 048
     Dates: start: 20110101
  3. SEROQUEL [Suspect]
     Dosage: 1 TABLET DAILY AND ONE TABLET ONE HOUR BEFORE BEDTIME
     Route: 048

REACTIONS (4)
  - LABORATORY TEST ABNORMAL [None]
  - BIPOLAR DISORDER [None]
  - DYSPHAGIA [None]
  - FOOD CRAVING [None]
